FAERS Safety Report 8508432-7 (Version None)
Quarter: 2012Q3

REPORT INFORMATION
  Report Type: 
  Country: None (occurrence: None)
  Receive Date: 20120713
  Receipt Date: 20120702
  Transmission Date: 20120928
  Serious: Yes (Hospitalization)
  Sender: FDA-Public Use
  Company Number: NL-CELGENEUS-114-20785-11090482

PATIENT
  Sex: Male
  Weight: 96 kg

DRUGS (3)
  1. THALIDOMIDE [Suspect]
     Indication: MULTIPLE MYELOMA
     Dosage: 100 MILLIGRAM
     Route: 048
     Dates: start: 20110704
  2. MELPHALAN HYDROCHLORIDE [Suspect]
     Indication: MULTIPLE MYELOMA
     Dosage: 14 MILLIGRAM
     Route: 048
     Dates: start: 20110704, end: 20110907
  3. PREDNISONE [Suspect]
     Indication: MULTIPLE MYELOMA
     Dosage: 120 MILLIGRAM
     Route: 048
     Dates: start: 20110704, end: 20110707

REACTIONS (1)
  - DIVERTICULITIS [None]
